FAERS Safety Report 8402070-2 (Version None)
Quarter: 2012Q2

REPORT INFORMATION
  Report Type: 
  Country: None (occurrence: None)
  Receive Date: 20120601
  Receipt Date: 20120524
  Transmission Date: 20120825
  Serious: Yes (Other)
  Sender: FDA-Public Use
  Company Number: PHHY2012NZ045530

PATIENT
  Age: 75 Year
  Sex: Male

DRUGS (6)
  1. QUINAPRIL [Suspect]
  2. ASPIRIN [Suspect]
  3. METOPROLOL TARTRATE [Suspect]
  4. AMITRIPTYLINE HCL [Suspect]
  5. QUETIAPINE [Suspect]
  6. CITALOPRAM HYDROBROMIDE [Suspect]

REACTIONS (12)
  - ELECTROCARDIOGRAM QRS COMPLEX PROLONGED [None]
  - POISONING [None]
  - PNEUMONIA ASPIRATION [None]
  - BLOOD GLUCOSE INCREASED [None]
  - CONVULSION [None]
  - BLOOD PRESSURE DECREASED [None]
  - AGITATION [None]
  - CARDIOTOXICITY [None]
  - TACHYCARDIA [None]
  - MYDRIASIS [None]
  - HEART RATE INCREASED [None]
  - UNRESPONSIVE TO STIMULI [None]
